FAERS Safety Report 19010865 (Version 4)
Quarter: 2022Q2

REPORT INFORMATION
  Report Type: Spontaneous
  Country: BR (occurrence: BR)
  Receive Date: 20210315
  Receipt Date: 20220628
  Transmission Date: 20220720
  Serious: Yes (Other)
  Sender: FDA-Public Use
  Company Number: BR-GLAXOSMITHKLINE-BR2021AMR060334

PATIENT

DRUGS (1)
  1. FLUTICASONE PROPIONATE [Suspect]
     Active Substance: FLUTICASONE PROPIONATE
     Indication: Asthma
     Dosage: 1 PUFF(S), BID  (250 ?G X 60 DOSES)
     Route: 055

REACTIONS (6)
  - Asthmatic crisis [Unknown]
  - Overdose [Unknown]
  - Wrong technique in product usage process [Unknown]
  - Product use issue [Unknown]
  - Product prescribing issue [Unknown]
  - Product complaint [Unknown]
